FAERS Safety Report 7121051-2 (Version None)
Quarter: 2010Q4

REPORT INFORMATION
  Report Type: 
  Country: None (occurrence: None)
  Receive Date: 20101124
  Receipt Date: 20101116
  Transmission Date: 20110411
  Serious: Yes (Other)
  Sender: FDA-Public Use
  Company Number: CA-JNJFOC-20101105941

PATIENT
  Age: 28 Year
  Sex: Male

DRUGS (1)
  1. PREZISTA [Suspect]
     Indication: PRODUCT USED FOR UNKNOWN INDICATION
     Dosage: 2 X 300 MG TWICE DAILY
     Route: 048
     Dates: start: 20091101

REACTIONS (1)
  - PHARYNGEAL OPERATION [None]
